FAERS Safety Report 4847053-4 (Version None)
Quarter: 2006Q1

REPORT INFORMATION
  Report Type: 
  Country: None (occurrence: None)
  Receive Date: 20051207
  Receipt Date: 20051128
  Transmission Date: 20060701
  Serious: Yes (Hospitalization)
  Sender: FDA-Public Use
  Company Number: US-JNJFOC-20050202096

PATIENT
  Sex: Male

DRUGS (2)
  1. REMICADE [Suspect]
     Indication: RHEUMATOID ARTHRITIS
     Dosage: RECEIVED SIX DOSES
     Route: 042
  2. METHOTREXATE [Concomitant]

REACTIONS (3)
  - BRONCHITIS [None]
  - HIP ARTHROPLASTY [None]
  - TUBERCULOSIS [None]
